FAERS Safety Report 11147655 (Version 1)
Quarter: 2015Q2

REPORT INFORMATION
  Report Type: Spontaneous
  Country: US (occurrence: None)
  Receive Date: 20150528
  Receipt Date: 20150528
  Transmission Date: 20150821
  Serious: Yes (Death, Hospitalization)
  Sender: FDA-Public Use
  Company Number: None

PATIENT
  Age: 43 Year
  Sex: Female
  Weight: 141 kg

DRUGS (10)
  1. ALBUTEROL. [Concomitant]
     Active Substance: ALBUTEROL
  2. BENZONATATE. [Concomitant]
     Active Substance: BENZONATATE
  3. ASPIRIN. [Concomitant]
     Active Substance: ASPIRIN
  4. LISINOPRIL. [Concomitant]
     Active Substance: LISINOPRIL
  5. SEVELAMER [Concomitant]
     Active Substance: SEVELAMER
  6. APIXABAN [Suspect]
     Active Substance: APIXABAN
     Indication: DEEP VEIN THROMBOSIS
     Route: 048
  7. SYMBICORT [Concomitant]
     Active Substance: BUDESONIDE\FORMOTEROL FUMARATE DIHYDRATE
  8. BUMETANIDE. [Concomitant]
     Active Substance: BUMETANIDE
  9. CARVEDILOL. [Concomitant]
     Active Substance: CARVEDILOL
  10. CINACALCET [Concomitant]
     Active Substance: CINACALCET

REACTIONS (6)
  - Brain herniation [None]
  - Headache [None]
  - Muscular weakness [None]
  - Cerebral haemorrhage [None]
  - Septic shock [None]
  - Paraesthesia [None]

NARRATIVE: CASE EVENT DATE: 20150520
